FAERS Safety Report 5853843-1 (Version None)
Quarter: 2008Q3

REPORT INFORMATION
  Report Type: 
  Country: None (occurrence: None)
  Receive Date: 20080822
  Receipt Date: 20080812
  Transmission Date: 20090109
  Serious: Yes (Hospitalization)
  Sender: FDA-Public Use
  Company Number: US-BRISTOL-MYERS SQUIBB COMPANY-14310296

PATIENT
  Age: 68 Year
  Sex: Female

DRUGS (2)
  1. CYCLOPHOSPHAMIDE [Suspect]
     Indication: BREAST CANCER STAGE II
     Dosage: FORM=SOL(INF),CYCLE 1(26MAR08 600MG/M2),CYC 2(16APR08) AND CYC 3(07MAY 1080MG/M2), DISCONTINUED.
     Route: 042
     Dates: start: 20080507, end: 20080507
  2. TAXOTERE [Suspect]
     Dates: start: 20080326, end: 20080517

REACTIONS (2)
  - DIVERTICULITIS [None]
  - FEMALE GENITAL TRACT FISTULA [None]
